FAERS Safety Report 15211652 (Version 2)
Quarter: 2018Q4

REPORT INFORMATION
  Report Type: Spontaneous
  Country: DK (occurrence: DK)
  Receive Date: 20180729
  Receipt Date: 20181001
  Transmission Date: 20190204
  Serious: Yes (Disabling)
  Sender: FDA-Public Use
  Company Number: PHHY2018DK056730

PATIENT
  Age: 90 Year
  Sex: Female

DRUGS (2)
  1. ACLASTA [Suspect]
     Active Substance: ZOLEDRONIC ACID
     Indication: OSTEOPOROSIS
     Dosage: 5 MG, Q12MO (YEAR)
     Route: 042
     Dates: start: 2009, end: 20120104
  2. PROLIA [Suspect]
     Active Substance: DENOSUMAB
     Indication: OSTEOPOROSIS
     Dosage: 60 MG, 6 MONTH
     Route: 058
     Dates: start: 20120104, end: 20180510

REACTIONS (4)
  - Oral cavity fistula [Unknown]
  - Osteonecrosis of jaw [Not Recovered/Not Resolved]
  - Oral mucosal erythema [Unknown]
  - Oral pain [Unknown]

NARRATIVE: CASE EVENT DATE: 201711
